FAERS Safety Report 13881085 (Version 5)
Quarter: 2018Q1

REPORT INFORMATION
  Report Type: Report from Study
  Country: CA (occurrence: CA)
  Receive Date: 20170818
  Receipt Date: 20180122
  Transmission Date: 20180508
  Serious: Yes (Other)
  Sender: FDA-Public Use
  Company Number: CA-TAKEDA-2017TUS017115

PATIENT
  Age: 35 Year
  Sex: Male

DRUGS (3)
  1. IRON [Concomitant]
     Active Substance: IRON
     Dosage: UNK
  2. APO-OMEPRAZOLE [Concomitant]
     Active Substance: OMEPRAZOLE
     Dosage: UNK
  3. VEDOLIZUMAB [Suspect]
     Active Substance: VEDOLIZUMAB
     Indication: CROHN^S DISEASE
     Dosage: 300 MG, UNK
     Route: 042
     Dates: start: 20160923

REACTIONS (7)
  - Hand fracture [Unknown]
  - Post procedural infection [Recovered/Resolved]
  - Osteitis [Recovered/Resolved]
  - Cellulitis [Recovered/Resolved]
  - Ocular hyperaemia [Not Recovered/Not Resolved]
  - Drug dose omission [Unknown]
  - Fall [Unknown]

NARRATIVE: CASE EVENT DATE: 20170703
